FAERS Safety Report 7573666-5 (Version None)
Quarter: 2011Q2

REPORT INFORMATION
  Report Type: 
  Country: None (occurrence: None)
  Receive Date: 20110627
  Receipt Date: 20110625
  Transmission Date: 20111010
  Serious: Yes (Other)
  Sender: FDA-Public Use
  Company Number: US-PFIZER INC-2011141333

PATIENT
  Sex: Female
  Weight: 56.236 kg

DRUGS (6)
  1. GABAPENTIN [Suspect]
     Indication: NERVE INJURY
     Dosage: 600 MG, 2X/DAY
     Route: 048
     Dates: start: 20090101
  2. KENALOG [Suspect]
     Indication: NERVE INJURY
     Dosage: 40 MG, MONTHLY
     Dates: start: 20090101
  3. GABAPENTIN [Suspect]
     Indication: PAIN
     Dosage: 600 MG, 3X/DAY
     Route: 048
     Dates: start: 20110620
  4. KENALOG [Suspect]
     Indication: PAIN
     Dosage: 80 MG, MONTHLY
     Dates: start: 20110601
  5. ROXICET [Concomitant]
     Dosage: 30 MG, AS NEEDED
  6. ZANAFLEX [Concomitant]
     Dosage: UNK

REACTIONS (5)
  - NERVE INJURY [None]
  - OEDEMA PERIPHERAL [None]
  - JOINT SWELLING [None]
  - PAIN [None]
  - ERYTHEMA [None]
